FAERS Safety Report 20179672 (Version 1)
Quarter: 2021Q4

REPORT INFORMATION
  Report Type: Spontaneous
  Country: US (occurrence: US)
  Receive Date: 20211214
  Receipt Date: 20211214
  Transmission Date: 20220303
  Serious: Yes (Death, Hospitalization)
  Sender: FDA-Public Use
  Company Number: US-JNJFOC-20211211939

PATIENT
  Age: 20 Year
  Sex: Male
  Weight: 95 kg

DRUGS (1)
  1. TYLENOL [Suspect]
     Active Substance: ACETAMINOPHEN
     Indication: Influenza like illness
     Dosage: 1500 MG, UNKNOWN MONTHS
     Route: 048
     Dates: end: 20011225

REACTIONS (9)
  - Acute hepatic failure [Fatal]
  - Multiple organ dysfunction syndrome [Fatal]
  - Pulmonary embolism [Fatal]
  - Acute kidney injury [Fatal]
  - Chest X-ray abnormal [Fatal]
  - Toxicity to various agents [Fatal]
  - Product administration error [Fatal]
  - Gastrointestinal haemorrhage [Recovered/Resolved]
  - Arrhythmia [Recovered/Resolved]
